FAERS Safety Report 6031490-9 (Version None)
Quarter: 2009Q1

REPORT INFORMATION
  Report Type: 
  Country: None (occurrence: None)
  Receive Date: 20090108
  Receipt Date: 20090105
  Transmission Date: 20090719
  Serious: Yes (Hospitalization)
  Sender: FDA-Public Use
  Company Number: FR-PFIZER INC-2009152012

PATIENT

DRUGS (7)
  1. TAHOR [Suspect]
     Route: 048
     Dates: start: 20081017, end: 20081108
  2. COVERSYL [Suspect]
     Route: 048
     Dates: start: 20081103, end: 20081112
  3. HEPARIN CALCIUM [Concomitant]
     Dosage: UNK
     Route: 057
     Dates: start: 20081017
  4. NEXIUM [Concomitant]
     Dosage: 20 MG, 1X/DAY
     Route: 048
     Dates: start: 20081017, end: 20081105
  5. PARACETAMOL [Concomitant]
     Dosage: 1 DF, 1X/DAY
     Route: 048
     Dates: start: 20081017
  6. PREVISCAN [Concomitant]
     Dosage: 1 DF, 1X/DAY
     Route: 048
     Dates: start: 20081017
  7. ALLOPURINOL [Concomitant]
     Dosage: 1 DF, 1X/DAY
     Route: 048
     Dates: start: 20081017

REACTIONS (2)
  - HEPATIC ENZYME INCREASED [None]
  - RENAL FAILURE [None]
